FAERS Safety Report 9562694 (Version 2)
Quarter: 2013Q4

REPORT INFORMATION
  Report Type: Spontaneous
  Country: US (occurrence: US)
  Receive Date: 20130927
  Receipt Date: 20131018
  Transmission Date: 20140711
  Serious: No
  Sender: FDA-Public Use
  Company Number: US-PFIZER INC-2013277308

PATIENT
  Age: 67 Year
  Sex: Female
  Weight: 76.19 kg

DRUGS (8)
  1. CELEBREX [Suspect]
     Indication: ARTHRITIS
     Dosage: 200 MG, 1X/DAY
     Route: 048
     Dates: start: 2012
  2. CARDURA [Suspect]
     Dosage: 2 MG, 1X/DAY
     Route: 048
     Dates: start: 2013
  3. HYDROCHLOROTHIAZIDE [Concomitant]
     Dosage: 25 MG, 1X/DAY
  4. DEXILANT [Concomitant]
     Dosage: 60 MG, 1X/DAY
  5. LOSARTAN [Concomitant]
     Dosage: 100 MG, 1X/DAY
  6. PRAVASTATIN [Concomitant]
     Dosage: 40 MG, 1X/DAY
  7. CARDIZEM [Concomitant]
     Dosage: 2X/DAY
  8. CRESTOR [Concomitant]
     Dosage: 10 MG

REACTIONS (3)
  - Carpal tunnel syndrome [Unknown]
  - Trigger finger [Unknown]
  - Limb injury [Unknown]
